FAERS Safety Report 9029420 (Version 1)
Quarter: 2013Q1

REPORT INFORMATION
  Report Type: Report from Study
  Country: MX (occurrence: MX)
  Receive Date: 20130125
  Receipt Date: 20130125
  Transmission Date: 20140127
  Serious: Yes (Hospitalization, Other)
  Sender: FDA-Public Use
  Company Number: PHHO2013MX001328

PATIENT
  Age: 55 Year
  Sex: Female
  Weight: 79.6 kg

DRUGS (2)
  1. AFINITOR [Suspect]
     Indication: BREAST CANCER
     Dosage: 10 MG, DAILY
     Dates: start: 20121107, end: 20121207
  2. ENALAPRIL [Concomitant]
     Indication: HYPERTENSION
     Dosage: 10 MG, DAILY

REACTIONS (4)
  - Hypoxia [Recovering/Resolving]
  - Stomatitis [Recovering/Resolving]
  - Chronic obstructive pulmonary disease [Unknown]
  - Interstitial lung disease [Recovering/Resolving]
